FAERS Safety Report 20991590 (Version 5)
Quarter: 2022Q4

REPORT INFORMATION
  Report Type: Spontaneous
  Country: US (occurrence: US)
  Receive Date: 20220622
  Receipt Date: 20221007
  Transmission Date: 20230112
  Serious: Yes (Hospitalization)
  Sender: FDA-Public Use
  Company Number: US-GLAXOSMITHKLINE-US2022095112

PATIENT
  Age: 75 Year
  Sex: Female

DRUGS (3)
  1. ZEJULA [Suspect]
     Active Substance: NIRAPARIB
     Indication: Ovarian cancer
     Dosage: 100 MG, BID
     Route: 048
     Dates: start: 20220605
  2. ZEJULA [Suspect]
     Active Substance: NIRAPARIB
     Dosage: 200 MG, QD
  3. ZEJULA [Suspect]
     Active Substance: NIRAPARIB
     Dosage: 200 MG, QD
     Route: 048
     Dates: end: 202207

REACTIONS (21)
  - Hospitalisation [Unknown]
  - Abdominal discomfort [Not Recovered/Not Resolved]
  - Nausea [Not Recovered/Not Resolved]
  - Asthenia [Not Recovered/Not Resolved]
  - Hyperhidrosis [Unknown]
  - Presyncope [Unknown]
  - Dizziness [Unknown]
  - Fatigue [Unknown]
  - Headache [Unknown]
  - Tinnitus [Unknown]
  - Eructation [Unknown]
  - Eating disorder [Unknown]
  - Fine motor skill dysfunction [Unknown]
  - Condition aggravated [Unknown]
  - Intentional product misuse [Not Recovered/Not Resolved]
  - Illness [Unknown]
  - Red blood cell count decreased [Unknown]
  - Vomiting [Unknown]
  - Decreased appetite [Unknown]
  - Gait inability [Unknown]
  - Drug intolerance [Unknown]

NARRATIVE: CASE EVENT DATE: 20220605
